FAERS Safety Report 4638898-4 (Version None)
Quarter: 2005Q2

REPORT INFORMATION
  Report Type: 
  Country: None (occurrence: None)
  Receive Date: 20050419
  Receipt Date: 20050329
  Transmission Date: 20051028
  Serious: Yes (Death, Hospitalization)
  Sender: FDA-Public Use
  Company Number: PHBS2005IT04463

PATIENT
  Age: 41 Year
  Sex: Female

DRUGS (3)
  1. LIOMETACEN [Suspect]
     Indication: PAIN
     Dosage: UNK, PRN
     Route: 042
  2. SANDIMMUNE [Suspect]
     Indication: JUVENILE ARTHRITIS
     Dosage: 200 MG/D
     Route: 048
     Dates: start: 20010101, end: 20050322
  3. DELTACORTENE [Suspect]
     Dosage: 10 MG/D
     Route: 048

REACTIONS (9)
  - ANURIA [None]
  - BLOOD CREATININE INCREASED [None]
  - DEATH [None]
  - DIALYSIS [None]
  - DRUG INTERACTION [None]
  - LYMPHOMA [None]
  - PYREXIA [None]
  - RENAL FAILURE ACUTE [None]
  - SEPSIS [None]
